FAERS Safety Report 7229957-0 (Version None)
Quarter: 2011Q1

REPORT INFORMATION
  Report Type: 
  Country: None (occurrence: None)
  Receive Date: 20110117
  Receipt Date: 20110111
  Transmission Date: 20110831
  Serious: Yes (Death)
  Sender: FDA-Public Use
  Company Number: IT-ELI_LILLY_AND_COMPANY-IT201101002573

PATIENT
  Sex: Male

DRUGS (1)
  1. BYETTA [Suspect]
     Indication: TYPE 2 DIABETES MELLITUS
     Dosage: 20 D/F, DAILY (1/D)
     Route: 058
     Dates: start: 20080605, end: 20090206

REACTIONS (3)
  - SUDDEN DEATH [None]
  - INFARCTION [None]
  - OVERDOSE [None]
